FAERS Safety Report 24189379 (Version 1)
Quarter: 2024Q3

REPORT INFORMATION
  Report Type: Spontaneous
  Country: FR (occurrence: FR)
  Receive Date: 20240808
  Receipt Date: 20240808
  Transmission Date: 20241017
  Serious: Yes (Hospitalization)
  Sender: INSUD PHARMA
  Company Number: None

PATIENT
  Age: 31 Year
  Sex: Female
  Weight: 56 kg

DRUGS (1)
  1. LEVONORGESTREL [Suspect]
     Active Substance: LEVONORGESTREL
     Indication: Post coital contraception
     Route: 048
     Dates: start: 20240630, end: 20240630

REACTIONS (1)
  - Thunderclap headache [Recovered/Resolved]

NARRATIVE: CASE EVENT DATE: 20240701
